FAERS Safety Report 19681821 (Version 1)
Quarter: 2021Q3

REPORT INFORMATION
  Report Type: Other
  Country: US (occurrence: US)
  Receive Date: 20210810
  Receipt Date: 20210810
  Transmission Date: 20211014
  Serious: No
  Sender: FDA-Public Use
  Company Number: US-ROCHE-2879206

PATIENT
  Age: 45 Year
  Sex: Female
  Weight: 62.65 kg

DRUGS (7)
  1. VENLAFAXINE [Concomitant]
     Active Substance: VENLAFAXINE HYDROCHLORIDE
     Route: 048
     Dates: start: 2019
  2. VITAMIN C [Concomitant]
     Active Substance: ASCORBIC ACID
     Route: 048
     Dates: start: 202102
  3. COVID?19 VACCINE [Concomitant]
     Dosage: TWO DOSES
     Dates: start: 202104, end: 20210507
  4. MIRTAZAPINE. [Concomitant]
     Active Substance: MIRTAZAPINE
     Dosage: AT NIGHT
     Route: 048
     Dates: start: 2018
  5. VITAMIN D3 [Concomitant]
     Active Substance: CHOLECALCIFEROL
     Indication: VITAMIN D DECREASED
     Dosage: TWO 5000 MG PILLS
     Route: 048
     Dates: start: 2020
  6. OCREVUS [Suspect]
     Active Substance: OCRELIZUMAB
     Indication: RELAPSING-REMITTING MULTIPLE SCLEROSIS
     Route: 042
     Dates: start: 201912
  7. MODAFINIL. [Concomitant]
     Active Substance: MODAFINIL
     Route: 048
     Dates: start: 2019

REACTIONS (5)
  - Disturbance in attention [Not Recovered/Not Resolved]
  - SARS-CoV-2 antibody test negative [Not Recovered/Not Resolved]
  - COVID-19 [Recovered/Resolved]
  - Product dose omission issue [Unknown]
  - Off label use [Unknown]

NARRATIVE: CASE EVENT DATE: 201912
